FAERS Safety Report 9588661 (Version 2)
Quarter: 2013Q4

REPORT INFORMATION
  Report Type: Spontaneous
  Country: US (occurrence: US)
  Receive Date: 20131003
  Receipt Date: 20131003
  Transmission Date: 20140711
  Serious: No
  Sender: FDA-Public Use
  Company Number: US-AMGEN-USASP2012064180

PATIENT
  Age: 73 Year
  Sex: Female
  Weight: 73.47 kg

DRUGS (1)
  1. ENBREL [Suspect]
     Indication: RHEUMATOID ARTHRITIS
     Dosage: 50 MG, QWK
     Dates: start: 20120709

REACTIONS (3)
  - Localised infection [Not Recovered/Not Resolved]
  - Laceration [Not Recovered/Not Resolved]
  - Injection site bruising [Not Recovered/Not Resolved]
